FAERS Safety Report 4837522-5 (Version None)
Quarter: 2005Q4

REPORT INFORMATION
  Report Type: 
  Country: None (occurrence: None)
  Receive Date: 20051128
  Receipt Date: 20051121
  Transmission Date: 20060501
  Serious: Yes (Other)
  Sender: FDA-Public Use
  Company Number: DE-GLAXOSMITHKLINE-D0048077A

PATIENT

DRUGS (1)
  1. MALARONE [Suspect]
     Route: 048
     Dates: end: 20050101

REACTIONS (1)
  - HEPATIC ENZYME INCREASED [None]
